FAERS Safety Report 25427884 (Version 1)
Quarter: 2025Q2

REPORT INFORMATION
  Report Type: Spontaneous
  Country: US (occurrence: US)
  Receive Date: 20250612
  Receipt Date: 20250612
  Transmission Date: 20250716
  Serious: Yes (Hospitalization)
  Sender: MYLAN
  Company Number: US-MYLANLABS-2025M1048343

PATIENT
  Sex: Female

DRUGS (32)
  1. HALOPERIDOL DECANOATE [Suspect]
     Active Substance: HALOPERIDOL DECANOATE
     Indication: Cannabinoid hyperemesis syndrome
  2. HALOPERIDOL DECANOATE [Suspect]
     Active Substance: HALOPERIDOL DECANOATE
     Route: 042
  3. HALOPERIDOL DECANOATE [Suspect]
     Active Substance: HALOPERIDOL DECANOATE
     Route: 042
  4. HALOPERIDOL DECANOATE [Suspect]
     Active Substance: HALOPERIDOL DECANOATE
  5. METOCLOPRAMIDE [Suspect]
     Active Substance: METOCLOPRAMIDE
     Indication: Drug withdrawal syndrome
  6. METOCLOPRAMIDE [Suspect]
     Active Substance: METOCLOPRAMIDE
     Indication: Cannabinoid hyperemesis syndrome
  7. METOCLOPRAMIDE [Suspect]
     Active Substance: METOCLOPRAMIDE
     Route: 042
  8. METOCLOPRAMIDE [Suspect]
     Active Substance: METOCLOPRAMIDE
     Route: 042
  9. METOCLOPRAMIDE [Suspect]
     Active Substance: METOCLOPRAMIDE
  10. METOCLOPRAMIDE [Suspect]
     Active Substance: METOCLOPRAMIDE
  11. METOCLOPRAMIDE [Suspect]
     Active Substance: METOCLOPRAMIDE
     Route: 042
  12. METOCLOPRAMIDE [Suspect]
     Active Substance: METOCLOPRAMIDE
     Route: 042
  13. ONDANSETRON [Suspect]
     Active Substance: ONDANSETRON
     Indication: Vomiting
     Dosage: 4 MILLIGRAM, Q6H (AS NEEDED)
  14. ONDANSETRON [Suspect]
     Active Substance: ONDANSETRON
     Dosage: 4 MILLIGRAM, Q6H (AS NEEDED)
     Route: 042
  15. ONDANSETRON [Suspect]
     Active Substance: ONDANSETRON
     Dosage: 4 MILLIGRAM, Q6H (AS NEEDED)
     Route: 042
  16. ONDANSETRON [Suspect]
     Active Substance: ONDANSETRON
     Dosage: 4 MILLIGRAM, Q6H (AS NEEDED)
  17. DROPERIDOL [Concomitant]
     Active Substance: DROPERIDOL
     Indication: Cannabinoid hyperemesis syndrome
  18. DROPERIDOL [Concomitant]
     Active Substance: DROPERIDOL
     Route: 065
  19. DROPERIDOL [Concomitant]
     Active Substance: DROPERIDOL
     Route: 065
  20. DROPERIDOL [Concomitant]
     Active Substance: DROPERIDOL
  21. DIPHENHYDRAMINE [Concomitant]
     Active Substance: DIPHENHYDRAMINE
     Indication: Drug withdrawal syndrome
  22. DIPHENHYDRAMINE [Concomitant]
     Active Substance: DIPHENHYDRAMINE
     Route: 042
  23. DIPHENHYDRAMINE [Concomitant]
     Active Substance: DIPHENHYDRAMINE
     Route: 042
  24. DIPHENHYDRAMINE [Concomitant]
     Active Substance: DIPHENHYDRAMINE
  25. PANTOPRAZOLE [Concomitant]
     Active Substance: PANTOPRAZOLE
     Indication: Product used for unknown indication
     Dosage: 40 MILLIGRAM, BID
  26. PANTOPRAZOLE [Concomitant]
     Active Substance: PANTOPRAZOLE
     Dosage: 40 MILLIGRAM, BID
     Route: 042
  27. PANTOPRAZOLE [Concomitant]
     Active Substance: PANTOPRAZOLE
     Dosage: 40 MILLIGRAM, BID
     Route: 042
  28. PANTOPRAZOLE [Concomitant]
     Active Substance: PANTOPRAZOLE
     Dosage: 40 MILLIGRAM, BID
  29. CAPSAICIN [Concomitant]
     Active Substance: CAPSAICIN
     Indication: Product used for unknown indication
  30. CAPSAICIN [Concomitant]
     Active Substance: CAPSAICIN
     Route: 061
  31. CAPSAICIN [Concomitant]
     Active Substance: CAPSAICIN
     Route: 061
  32. CAPSAICIN [Concomitant]
     Active Substance: CAPSAICIN

REACTIONS (3)
  - Oromandibular dystonia [Unknown]
  - Drug ineffective [Unknown]
  - Off label use [Unknown]
